FAERS Safety Report 4734775-9 (Version None)
Quarter: 2005Q3

REPORT INFORMATION
  Report Type: 
  Country: None (occurrence: None)
  Receive Date: 20050804
  Receipt Date: 20050728
  Transmission Date: 20060218
  Serious: Yes (Other)
  Sender: FDA-Public Use
  Company Number: 0405GBR00191

PATIENT
  Age: 56 Year
  Sex: Female

DRUGS (8)
  1. AUGMENTIN '125' [Suspect]
     Route: 065
  2. CO-DYDRAMOL [Suspect]
     Route: 065
  3. METHOTREXATE [Suspect]
     Route: 065
  4. VIOXX [Suspect]
     Route: 048
  5. FLUOXETINE [Suspect]
     Route: 065
  6. PREMARIN [Suspect]
     Route: 065
  7. HUMIRA [Suspect]
  8. PREMARIN [Suspect]
     Route: 065

REACTIONS (1)
  - EYE HAEMORRHAGE [None]
